FAERS Safety Report 7203720-9 (Version None)
Quarter: 2010Q4

REPORT INFORMATION
  Report Type: 
  Country: None (occurrence: None)
  Receive Date: 20101230
  Receipt Date: 20101229
  Transmission Date: 20110411
  Serious: Yes (Other)
  Sender: FDA-Public Use
  Company Number: US-PFIZER INC-2010181374

PATIENT
  Sex: Male
  Weight: 70.748 kg

DRUGS (11)
  1. ZOLOFT [Suspect]
     Indication: BIPOLAR DISORDER
     Dosage: 100 MG, 1X/DAY
     Route: 048
     Dates: end: 20101217
  2. ASPIRIN [Concomitant]
     Indication: CHEST PAIN
     Dosage: 81 MG, 1X/DAY
  3. METFORMIN HCL [Concomitant]
     Indication: TYPE 2 DIABETES MELLITUS
     Dosage: 500 MG, UNK
     Route: 048
  4. LISINOPRIL [Concomitant]
     Indication: HYPERTENSION
     Dosage: 25 MG, 1X/DAY
     Route: 048
  5. NEXIUM [Concomitant]
     Indication: DYSPEPSIA
     Dosage: 40 MG, UNK
     Route: 048
  6. NEXIUM [Concomitant]
     Indication: GASTROOESOPHAGEAL REFLUX DISEASE
  7. NITROGLYCERIN [Concomitant]
     Dosage: 0.4 MG, UNK
  8. PROMETHAZINE [Concomitant]
     Indication: NAUSEA
     Dosage: 25 MG, UNK
  9. LIPITOR [Concomitant]
     Dosage: 40 MG, UNK
     Route: 048
  10. FISH OIL [Concomitant]
     Dosage: UNK
     Route: 048
  11. LORAZEPAM [Concomitant]
     Indication: ANXIETY
     Dosage: UNK
     Route: 048

REACTIONS (6)
  - AGGRESSION [None]
  - ANGER [None]
  - DIZZINESS [None]
  - FEELING ABNORMAL [None]
  - PSYCHIATRIC SYMPTOM [None]
  - SUICIDE ATTEMPT [None]
